FAERS Safety Report 5832226-4 (Version None)
Quarter: 2008Q3

REPORT INFORMATION
  Report Type: 
  Country: None (occurrence: None)
  Receive Date: 20080730
  Receipt Date: 20080716
  Transmission Date: 20090109
  Serious: Yes (Other)
  Sender: FDA-Public Use
  Company Number: RENA-1000190

PATIENT
  Age: 73 Year
  Sex: Female

DRUGS (4)
  1. RENAGEL [Suspect]
     Indication: HYPERPHOSPHATAEMIA
     Dosage: 4 DF, QD, 2 DF, QD
     Dates: start: 20070803, end: 20070812
  2. RENAGEL [Suspect]
     Indication: HYPERPHOSPHATAEMIA
     Dosage: 4 DF, QD, 2 DF, QD
     Dates: start: 20070813, end: 20080316
  3. RENAGEL [Suspect]
     Indication: HYPERPHOSPHATAEMIA
     Dosage: 4 DF, QD, 2 DF, QD
     Dates: start: 20080317, end: 20080420
  4. RENAGEL [Suspect]
     Indication: HYPERPHOSPHATAEMIA
     Dosage: 4 DF, QD, 2 DF, QD
     Dates: start: 20080421

REACTIONS (5)
  - ANORECTAL DISORDER [None]
  - CONSTIPATION [None]
  - GASTROINTESTINAL HAEMORRHAGE [None]
  - INTESTINAL ULCER PERFORATION [None]
  - ORAL FUNGAL INFECTION [None]
